FAERS Safety Report 4725911-9 (Version None)
Quarter: 2005Q3

REPORT INFORMATION
  Report Type: 
  Country: None (occurrence: None)
  Receive Date: 20050727
  Receipt Date: 20050412
  Transmission Date: 20060218
  Serious: Yes (Hospitalization, Other)
  Sender: FDA-Public Use
  Company Number: US-MERCK-0504USA02073

PATIENT
  Age: 51 Year
  Sex: Female
  Weight: 77 kg

DRUGS (7)
  1. VIOXX [Suspect]
     Indication: RHEUMATOID ARTHRITIS
     Route: 048
     Dates: start: 20020101, end: 20030801
  2. CARDIZEM [Concomitant]
     Route: 065
     Dates: start: 19990101, end: 20020401
  3. LASIX [Concomitant]
     Route: 065
     Dates: start: 20020101
  4. TYLENOL [Concomitant]
     Route: 065
     Dates: start: 20020101
  5. TYLENOL W/ CODEINE NO. 3 [Concomitant]
     Route: 065
  6. FLEXERIL [Concomitant]
     Route: 065
  7. INSULIN [Concomitant]
     Route: 065

REACTIONS (9)
  - BLOOD CHOLESTEROL INCREASED [None]
  - BREAST DISORDER [None]
  - CEREBROVASCULAR ACCIDENT [None]
  - CONVULSION [None]
  - DEPRESSION [None]
  - HYPERTENSION [None]
  - ISCHAEMIC STROKE [None]
  - MYOCARDIAL INFARCTION [None]
  - NEUROPATHY [None]
